FAERS Safety Report 20204540 (Version 1)
Quarter: 2021Q4

REPORT INFORMATION
  Report Type: Spontaneous
  Country: CA (occurrence: CA)
  Receive Date: 20211220
  Receipt Date: 20211220
  Transmission Date: 20220304
  Serious: Yes (Hospitalization)
  Sender: FDA-Public Use
  Company Number: CA-BAYER-2021A268727

PATIENT
  Age: 86 Year
  Sex: Male
  Weight: 72 kg

DRUGS (14)
  1. XARELTO [Suspect]
     Active Substance: RIVAROXABAN
     Indication: Product used for unknown indication
     Dosage: 20 MG, QD
     Route: 048
  2. VITAMIN D NOS [Concomitant]
     Active Substance: VITAMIN D NOS
  3. ALLOPURINOL [Concomitant]
     Active Substance: ALLOPURINOL
  4. ALBUTEROL [Concomitant]
     Active Substance: ALBUTEROL
  5. DOCUSATE [Concomitant]
     Active Substance: DOCUSATE
  6. RAMIPRIL [Concomitant]
     Active Substance: RAMIPRIL
  7. SENOKOT [Concomitant]
     Active Substance: SENNOSIDES
  8. RAPAFLO [Concomitant]
     Active Substance: SILODOSIN
  9. GLYCOPYRRONIUM\INDACATEROL [Concomitant]
     Active Substance: GLYCOPYRRONIUM\INDACATEROL
  10. ASPIRIN [Concomitant]
     Active Substance: ASPIRIN
  11. CICLESONIDE [Concomitant]
     Active Substance: CICLESONIDE
  12. MYRBETRIQ [Concomitant]
     Active Substance: MIRABEGRON
  13. ACETAMINOPHEN [Concomitant]
     Active Substance: ACETAMINOPHEN
  14. RISEDRONATE SODIUM [Concomitant]
     Active Substance: RISEDRONATE SODIUM

REACTIONS (3)
  - Haemoglobin decreased [Unknown]
  - Occult blood positive [Unknown]
  - Faeces discoloured [Unknown]
